FAERS Safety Report 21263042 (Version 1)
Quarter: 2022Q3

REPORT INFORMATION
  Report Type: Spontaneous
  Country: US (occurrence: None)
  Receive Date: 20220826
  Receipt Date: 20220826
  Transmission Date: 20221027
  Serious: Yes (unspecified)
  Sender: FDA-Public Use
  Company Number: None

PATIENT
  Age: 53 Year
  Sex: Female
  Weight: 64.35 kg

DRUGS (8)
  1. TRULICITY [Suspect]
     Active Substance: DULAGLUTIDE
     Indication: Diabetes mellitus
     Dosage: OTHER QUANTITY : 1 INJECTION(S);?OTHER FREQUENCY : WEEKLY;?
     Route: 061
     Dates: start: 20220813, end: 20220820
  2. VITAMIN D3 [Concomitant]
     Active Substance: CHOLECALCIFEROL
  3. OYSTER SHELL CALCIUM [Concomitant]
  4. BIKTARVY [Concomitant]
     Active Substance: BICTEGRAVIR SODIUM\EMTRICITABINE\TENOFOVIR ALAFENAMIDE FUMARATE
  5. GEMFIBROZIL [Concomitant]
  6. ERGOCALCIFEROL [Concomitant]
     Active Substance: ERGOCALCIFEROL
  7. DAILY VITAMIN [Concomitant]
  8. CRANBERRY [Concomitant]
     Active Substance: CRANBERRY

REACTIONS (5)
  - Hypoaesthesia [None]
  - Pain in extremity [None]
  - Musculoskeletal disorder [None]
  - Hypoaesthesia [None]
  - Arthropathy [None]

NARRATIVE: CASE EVENT DATE: 20220820
